FAERS Safety Report 9165575 (Version 1)
Quarter: 2013Q1

REPORT INFORMATION
  Report Type: Spontaneous
  Country: US (occurrence: None)
  Receive Date: 20130227
  Receipt Date: 20130227
  Transmission Date: 20140127
  Serious: Yes (Other)
  Sender: FDA-Public Use
  Company Number: NSR_00709_2012

PATIENT
  Sex: Male

DRUGS (7)
  1. ALLOPURINOL 300 MG TAB NOR [Suspect]
     Indication: GOUT
     Route: 048
     Dates: start: 201209
  2. OMEPRAZOLE [Concomitant]
  3. FUROSEMIDE [Concomitant]
  4. COREG [Concomitant]
  5. LISINOPRIL [Concomitant]
  6. METFORMIN [Concomitant]
  7. ULTRAM [Concomitant]

REACTIONS (4)
  - Product quality issue [None]
  - Drug ineffective [None]
  - Gout [None]
  - Gait disturbance [None]
